FAERS Safety Report 7617303-X (Version None)
Quarter: 2011Q3

REPORT INFORMATION
  Report Type: 
  Country: None (occurrence: None)
  Receive Date: 20110718
  Receipt Date: 20110706
  Transmission Date: 20111222
  Serious: No
  Sender: FDA-Public Use
  Company Number: PHHY2011AU61741

PATIENT
  Sex: Female

DRUGS (1)
  1. TASIGNA [Suspect]

REACTIONS (1)
  - WRONG TECHNIQUE IN DRUG USAGE PROCESS [None]
